FAERS Safety Report 13705277 (Version 1)
Quarter: 2017Q2

REPORT INFORMATION
  Report Type: Spontaneous
  Country: US (occurrence: US)
  Receive Date: 20170629
  Receipt Date: 20170629
  Transmission Date: 20170830
  Serious: Yes (Other)
  Sender: FDA-Public Use
  Company Number: None

PATIENT
  Age: 86 Year
  Sex: Male

DRUGS (1)
  1. TOBRAMYCIN AMPS 300MG NOVARTIS [Suspect]
     Active Substance: TOBRAMYCIN
     Indication: BRONCHITIS
     Dosage: 300 MG EVERY 12 HOURS VIA NEBULIZER
     Dates: start: 20170228, end: 20170331

REACTIONS (1)
  - Drug hypersensitivity [None]

NARRATIVE: CASE EVENT DATE: 20170331
